FAERS Safety Report 20102484 (Version 2)
Quarter: 2022Q1

REPORT INFORMATION
  Report Type: Spontaneous
  Country: US (occurrence: US)
  Receive Date: 20211123
  Receipt Date: 20220224
  Transmission Date: 20220424
  Serious: No
  Sender: FDA-Public Use
  Company Number: US-BRISTOL-MYERS SQUIBB COMPANY-BMS-2021-124878

PATIENT
  Age: 42 Year
  Sex: Female

DRUGS (1)
  1. ORENCIA [Suspect]
     Active Substance: ABATACEPT
     Indication: Systemic lupus erythematosus
     Dosage: 125 MILLIGRAM, QWK
     Route: 058
     Dates: start: 2020

REACTIONS (6)
  - Nerve compression [Unknown]
  - Injection site swelling [Unknown]
  - Injection site warmth [Unknown]
  - Pain [Unknown]
  - Administration site pain [Unknown]
  - Intentional product use issue [Unknown]

NARRATIVE: CASE EVENT DATE: 20200101
